FAERS Safety Report 7777012-3 (Version None)
Quarter: 2011Q3

REPORT INFORMATION
  Report Type: 
  Country: None (occurrence: None)
  Receive Date: 20110926
  Receipt Date: 20110926
  Transmission Date: 20111222
  Serious: Yes (Other)
  Sender: FDA-Public Use
  Company Number: None

PATIENT
  Age: 72 Year
  Sex: Female
  Weight: 74.8 kg

DRUGS (1)
  1. REGADENOSON -LEXISCAN- [Suspect]
     Indication: CARDIAC STRESS TEST
     Dosage: 0.4MG
     Route: 042
     Dates: start: 20110902, end: 20110902

REACTIONS (4)
  - DYSARTHRIA [None]
  - MENTAL STATUS CHANGES [None]
  - GRIP STRENGTH DECREASED [None]
  - VIITH NERVE PARALYSIS [None]
